FAERS Safety Report 21970562 (Version 2)
Quarter: 2023Q1

REPORT INFORMATION
  Report Type: Report from Study
  Country: US (occurrence: US)
  Receive Date: 20230209
  Receipt Date: 20230216
  Transmission Date: 20230417
  Serious: Yes (Other)
  Sender: FDA-Public Use
  Company Number: US-ABBVIE-4299473

PATIENT
  Age: 29 Year
  Sex: Female

DRUGS (3)
  1. SKYRIZI [Suspect]
     Active Substance: RISANKIZUMAB-RZAA
     Indication: Crohn^s disease
     Dosage: WEEK 0?600 MG/10ML
     Route: 042
     Dates: start: 20221105, end: 20221105
  2. SKYRIZI [Suspect]
     Active Substance: RISANKIZUMAB-RZAA
     Indication: Crohn^s disease
     Dosage: WEEK 4?600 MG/10ML
     Route: 042
     Dates: end: 20221203
  3. SKYRIZI [Suspect]
     Active Substance: RISANKIZUMAB-RZAA
     Indication: Crohn^s disease
     Dosage: WEEK 8?600 MG/10ML
     Route: 042
     Dates: start: 20221231

REACTIONS (3)
  - Abdominal operation [Recovering/Resolving]
  - Feeling abnormal [Unknown]
  - Intestinal resection [Unknown]

NARRATIVE: CASE EVENT DATE: 20230201
